FAERS Safety Report 25672092 (Version 4)
Quarter: 2025Q3

REPORT INFORMATION
  Report Type: Report from Study
  Country: GB (occurrence: GB)
  Receive Date: 20250812
  Receipt Date: 20250905
  Transmission Date: 20251021
  Serious: No
  Sender: AMGEN
  Company Number: GB-AMGEN-GBRNI2025143364

PATIENT
  Age: 56 Year
  Sex: Male

DRUGS (2)
  1. TALIMOGENE LAHERPAREPVEC [Suspect]
     Active Substance: TALIMOGENE LAHERPAREPVEC
     Indication: Malignant melanoma stage III
     Route: 026
     Dates: start: 20250213
  2. CHLORPHENIRAMINE [Concomitant]
     Active Substance: CHLORPHENIRAMINE

REACTIONS (1)
  - Herpes dermatitis [Recovered/Resolved]

NARRATIVE: CASE EVENT DATE: 20250712
